FAERS Safety Report 7804025-5 (Version None)
Quarter: 2011Q4

REPORT INFORMATION
  Report Type: 
  Country: None (occurrence: None)
  Receive Date: 20111010
  Receipt Date: 20110928
  Transmission Date: 20120403
  Serious: No
  Sender: FDA-Public Use
  Company Number: US-JNJFOC-20110912150

PATIENT
  Age: 30 Year
  Sex: Female

DRUGS (2)
  1. INVEGA SUSTENNA [Suspect]
     Route: 058
  2. INVEGA SUSTENNA [Suspect]
     Indication: BIPOLAR DISORDER
     Route: 058

REACTIONS (2)
  - GALACTORRHOEA [None]
  - INCORRECT ROUTE OF DRUG ADMINISTRATION [None]
